FAERS Safety Report 19942002 (Version 1)
Quarter: 2021Q4

REPORT INFORMATION
  Report Type: Spontaneous
  Country: US (occurrence: US)
  Receive Date: 20211011
  Receipt Date: 20211011
  Transmission Date: 20220303
  Serious: Yes (Hospitalization)
  Sender: FDA-Public Use
  Company Number: None

PATIENT
  Age: 70 Year
  Sex: Female
  Weight: 55 kg

DRUGS (1)
  1. REGEN-COV [Suspect]
     Active Substance: CASIRIVIMAB\IMDEVIMAB
     Indication: COVID-19
     Dosage: ?          OTHER FREQUENCY:ONCE;
     Route: 041
     Dates: start: 20211001, end: 20211001

REACTIONS (13)
  - Oxygen saturation decreased [None]
  - Dyspnoea [None]
  - Cough [None]
  - Tachypnoea [None]
  - Dyspnoea [None]
  - Mental status changes [None]
  - Confusional state [None]
  - Hypoxia [None]
  - Respiratory failure [None]
  - Blood lactic acid increased [None]
  - Atrial fibrillation [None]
  - Hypotension [None]
  - Sepsis [None]

NARRATIVE: CASE EVENT DATE: 20211003
